FAERS Safety Report 9216076 (Version 2)
Quarter: 2014Q1

REPORT INFORMATION
  Report Type: Spontaneous
  Country: US (occurrence: US)
  Receive Date: 20130408
  Receipt Date: 20140115
  Transmission Date: 20141002
  Serious: Yes (Other)
  Sender: FDA-Public Use
  Company Number: US-BAYER-2013-042676

PATIENT
  Age: 40 Year
  Sex: Female

DRUGS (7)
  1. OCELLA [Suspect]
     Indication: CONTRACEPTION
     Dosage: UNK
     Dates: start: 2004
  2. DEXILANT [Concomitant]
     Dosage: 60 MG, UNK
  3. AZITHROMYCIN [Concomitant]
     Dosage: 250 MG, UNK
  4. NEXIUM [Concomitant]
     Dosage: 40 MG, UNK
  5. ADVAIR [Concomitant]
     Dosage: 100-50
  6. SINGULAIR [Concomitant]
     Dosage: 10 MG, UNK
  7. LISINOPRIL HYDROCHLORTHIAZID [Concomitant]
     Dosage: 10-12.5 MG

REACTIONS (5)
  - Cholecystectomy [None]
  - Cholecystitis chronic [None]
  - Injury [None]
  - Pain [None]
  - Pain [None]
